FAERS Safety Report 5498507-1 (Version None)
Quarter: 2007Q4

REPORT INFORMATION
  Report Type: 
  Country: None (occurrence: None)
  Receive Date: 20071025
  Receipt Date: 20071025
  Transmission Date: 20080405
  Serious: Yes (Hospitalization)
  Sender: FDA-Public Use
  Company Number: None

PATIENT
  Age: 50 Year
  Sex: Female

DRUGS (1)
  1. GOODYS POWDER UNKNOWN [Suspect]
     Indication: BACK PAIN
     Dosage: 1 -2 POWDERS DAILY PO
     Route: 048

REACTIONS (3)
  - FAECES DISCOLOURED [None]
  - HAEMATEMESIS [None]
  - HYPOTENSION [None]
